FAERS Safety Report 4368783-7 (Version None)
Quarter: 2004Q2

REPORT INFORMATION
  Report Type: 
  Country: None (occurrence: None)
  Receive Date: 20040527
  Receipt Date: 20040507
  Transmission Date: 20050107
  Serious: Yes (Hospitalization)
  Sender: FDA-Public Use
  Company Number: US_0405103102

PATIENT
  Age: 58 Year
  Sex: Male

DRUGS (5)
  1. KEFLEX [Suspect]
     Indication: CATHETER RELATED INFECTION
  2. DOXORUBICIN HCL [Concomitant]
  3. GEMCITABINE [Concomitant]
  4. CARBOPLATIN [Concomitant]
  5. PACLITAXEL [Concomitant]

REACTIONS (7)
  - BLOOD SODIUM DECREASED [None]
  - DEHYDRATION [None]
  - DIARRHOEA [None]
  - HAEMOGLOBIN DECREASED [None]
  - NAUSEA [None]
  - PLATELET COUNT DECREASED [None]
  - VOMITING [None]
